FAERS Safety Report 4578287-4 (Version None)
Quarter: 2005Q1

REPORT INFORMATION
  Report Type: 
  Country: None (occurrence: None)
  Receive Date: 20050209
  Receipt Date: 20050124
  Transmission Date: 20050727
  Serious: Yes (Life-Threatening, Hospitalization)
  Sender: FDA-Public Use
  Company Number: PHEH2004US13401

PATIENT
  Age: 79 Year
  Sex: Female

DRUGS (6)
  1. VISUDYNE [Suspect]
     Indication: MACULAR DEGENERATION
     Dates: start: 20041213, end: 20041213
  2. SYNTHROID [Concomitant]
  3. ZOCOR [Concomitant]
  4. OCUVITE [Concomitant]
  5. ASPIRIN [Concomitant]
  6. CALCIUM WITH VITAMIN D [Concomitant]

REACTIONS (14)
  - COMA [None]
  - COMPLEX PARTIAL SEIZURES [None]
  - CONVULSION [None]
  - ENCEPHALITIS HERPES [None]
  - EXTENSOR PLANTAR RESPONSE [None]
  - EYELID PTOSIS [None]
  - GUILLAIN-BARRE SYNDROME [None]
  - HYPERREFLEXIA [None]
  - HYPOREFLEXIA [None]
  - MENINGITIS HERPES [None]
  - MYASTHENIC SYNDROME [None]
  - NERVOUS SYSTEM DISORDER [None]
  - PARALYSIS [None]
  - RESPIRATORY FAILURE [None]
